FAERS Safety Report 14828465 (Version 1)
Quarter: 2018Q2

REPORT INFORMATION
  Report Type: Spontaneous
  Country: US (occurrence: US)
  Receive Date: 20180430
  Receipt Date: 20180430
  Transmission Date: 20180711
  Serious: Yes (Disabling, Other)
  Sender: FDA-Public Use
  Company Number: US-REGENERON PHARMACEUTICALS, INC.-2018-21893

PATIENT

DRUGS (2)
  1. EYLEA [Suspect]
     Active Substance: AFLIBERCEPT
     Indication: NEOVASCULAR AGE-RELATED MACULAR DEGENERATION
     Dosage: UNK
  2. EYLEA [Suspect]
     Active Substance: AFLIBERCEPT
     Dosage: LAST PRIOR TO EVENT, OS
     Dates: start: 20180419, end: 20180419

REACTIONS (3)
  - Wrong technique in product usage process [Unknown]
  - Blindness [Unknown]
  - Eye inflammation [Unknown]

NARRATIVE: CASE EVENT DATE: 20180419
